FAERS Safety Report 8336073-3 (Version None)
Quarter: 2012Q2

REPORT INFORMATION
  Report Type: 
  Country: None (occurrence: None)
  Receive Date: 20120504
  Receipt Date: 20120427
  Transmission Date: 20120825
  Serious: Yes (Other)
  Sender: FDA-Public Use
  Company Number: JP-JNJFOC-20120413885

PATIENT
  Sex: Male
  Weight: 55 kg

DRUGS (32)
  1. LYRICA [Suspect]
     Indication: PAIN
     Route: 048
     Dates: start: 20111215, end: 20120101
  2. LAXOBERON [Concomitant]
     Route: 048
     Dates: start: 20111229, end: 20111229
  3. OLMESARTAN MEDOXOMIL [Concomitant]
     Route: 048
     Dates: start: 20120110
  4. LIPITOR [Concomitant]
     Route: 048
     Dates: start: 20080227
  5. MORPHINE HYDROCHLORIDE [Suspect]
     Indication: PRODUCT USED FOR UNKNOWN INDICATION
     Route: 048
     Dates: start: 20120119, end: 20120126
  6. FENTANYL-100 [Suspect]
     Route: 062
     Dates: start: 20120225, end: 20120305
  7. MORPHINE HYDROCHLORIDE [Suspect]
     Route: 048
     Dates: start: 20120105, end: 20120111
  8. CEFAZOLIN SODIUM [Concomitant]
     Route: 048
     Dates: start: 20120112
  9. PRIMPERAN TAB [Concomitant]
     Route: 042
     Dates: start: 20120216, end: 20120216
  10. FENTANYL-100 [Suspect]
     Route: 062
     Dates: start: 20120206, end: 20120216
  11. MORPHINE HYDROCHLORIDE [Suspect]
     Route: 048
     Dates: start: 20111229, end: 20120104
  12. LYRICA [Suspect]
     Route: 048
     Dates: start: 20120102, end: 20120216
  13. PRIMPERAN TAB [Concomitant]
     Indication: PROPHYLAXIS
     Route: 048
     Dates: start: 20111222, end: 20111222
  14. MAGNESIUM SULFATE [Concomitant]
     Route: 048
     Dates: start: 20111222, end: 20120111
  15. LENDORMIN D [Concomitant]
     Route: 048
     Dates: start: 20120106
  16. ZANTAC [Concomitant]
     Route: 048
     Dates: start: 20111212
  17. FENTANYL-100 [Suspect]
     Indication: PAIN
     Route: 062
     Dates: start: 20111229, end: 20120117
  18. FENTANYL-100 [Suspect]
     Route: 062
     Dates: start: 20120216, end: 20120225
  19. CODEINE PHOSPHATE [Suspect]
     Route: 048
     Dates: start: 20111229
  20. CODEINE PHOSPHATE [Suspect]
     Route: 048
     Dates: end: 20120104
  21. DEPAS [Concomitant]
     Route: 048
     Dates: start: 20120308, end: 20120406
  22. FENTANYL-100 [Suspect]
     Route: 062
     Dates: start: 20120117, end: 20120119
  23. CODEINE PHOSPHATE [Suspect]
     Indication: PRODUCT USED FOR UNKNOWN INDICATION
     Route: 048
     Dates: start: 20120105, end: 20120105
  24. PURSENNID [Concomitant]
     Route: 048
     Dates: start: 20110126, end: 20110126
  25. LENDORMIN D [Concomitant]
     Route: 048
     Dates: start: 20100730, end: 20111214
  26. LENDORMIN D [Concomitant]
     Route: 048
     Dates: start: 20091111, end: 20100729
  27. FENTANYL-100 [Suspect]
     Route: 062
     Dates: start: 20120119, end: 20120206
  28. CODEINE PHOSPHATE [Suspect]
     Route: 048
  29. MORPHINE HYDROCHLORIDE [Suspect]
     Route: 048
     Dates: start: 20120112, end: 20120118
  30. MORPHINE HYDROCHLORIDE [Suspect]
     Route: 048
     Dates: start: 20120217
  31. LECICARBON [Suspect]
     Indication: PRODUCT USED FOR UNKNOWN INDICATION
     Route: 054
     Dates: start: 20120105
  32. AN UNKNOWN MEDICATION [Concomitant]
     Route: 042
     Dates: start: 20120216, end: 20120216

REACTIONS (8)
  - SOMNOLENCE [None]
  - PALPITATIONS [None]
  - VOMITING [None]
  - WITHDRAWAL SYNDROME [None]
  - WEIGHT DECREASED [None]
  - CONSTIPATION [None]
  - NAUSEA [None]
  - EATING DISORDER [None]
